FAERS Safety Report 4442517-X (Version None)
Quarter: 2004Q3

REPORT INFORMATION
  Report Type: 
  Country: None (occurrence: None)
  Receive Date: 20040907
  Receipt Date: 20030516
  Transmission Date: 20050211
  Serious: Yes (Disabling)
  Sender: FDA-Public Use
  Company Number: CO-MERCK-0305COL00009

PATIENT
  Age: 64 Year
  Sex: Male

DRUGS (3)
  1. CAPTOPRIL [Concomitant]
     Route: 048
  2. METOPROLOL TARTRATE [Concomitant]
     Route: 048
  3. ZOCOR [Suspect]
     Indication: CORONARY ARTERY DISEASE
     Route: 048
     Dates: start: 20000101, end: 20000101

REACTIONS (5)
  - ASTHENIA [None]
  - HEADACHE [None]
  - MUSCLE ATROPHY [None]
  - MUSCLE RIGIDITY [None]
  - POLYMYOSITIS [None]
